FAERS Safety Report 15731642 (Version 1)
Quarter: 2018Q4

REPORT INFORMATION
  Report Type: Spontaneous
  Country: US (occurrence: US)
  Receive Date: 20181217
  Receipt Date: 20181217
  Transmission Date: 20190205
  Serious: Yes (Other)
  Sender: FDA-Public Use
  Company Number: None

PATIENT
  Age: 55 Year
  Sex: Female
  Weight: 65.9 kg

DRUGS (3)
  1. LEUCOVORIN. [Concomitant]
     Active Substance: LEUCOVORIN
     Dates: start: 20181127, end: 20181210
  2. OXALIPLATIN. [Suspect]
     Active Substance: OXALIPLATIN
     Indication: COLON CANCER
     Dosage: ?          OTHER FREQUENCY:EVERY 2 WEEKS;?
     Route: 041
     Dates: start: 20181127, end: 20181210
  3. FLUOROURACIL. [Concomitant]
     Active Substance: FLUOROURACIL
     Dates: start: 20181127, end: 20181210

REACTIONS (10)
  - Infusion related reaction [None]
  - Chills [None]
  - Throat irritation [None]
  - Tremor [None]
  - Cyanosis [None]
  - Pruritus [None]
  - Erythema [None]
  - Feeling abnormal [None]
  - Palpitations [None]
  - Hot flush [None]

NARRATIVE: CASE EVENT DATE: 20181210
